FAERS Safety Report 13148421 (Version 2)
Quarter: 2017Q1

REPORT INFORMATION
  Report Type: Spontaneous
  Country: US (occurrence: US)
  Receive Date: 20170124
  Receipt Date: 20170124
  Transmission Date: 20170428
  Serious: No
  Sender: FDA-Public Use
  Company Number: US-AMGEN-USASP2016160276

PATIENT
  Age: 64 Year
  Sex: Male
  Weight: 77.55 kg

DRUGS (1)
  1. REPATHA [Suspect]
     Active Substance: EVOLOCUMAB
     Indication: LOW DENSITY LIPOPROTEIN INCREASED
     Dosage: 140 MG, Q2WK
     Route: 065
     Dates: start: 20160901

REACTIONS (3)
  - Blood glucose increased [Recovered/Resolved]
  - Malaise [Unknown]
  - Nervousness [Recovered/Resolved]
